FAERS Safety Report 4719208-0 (Version None)
Quarter: 2005Q3

REPORT INFORMATION
  Report Type: 
  Country: None (occurrence: None)
  Receive Date: 20050720
  Receipt Date: 20050707
  Transmission Date: 20060218
  Serious: Yes (Other)
  Sender: FDA-Public Use
  Company Number: 2005069969

PATIENT
  Age: 68 Year
  Sex: Male

DRUGS (4)
  1. NORVASC [Suspect]
     Dosage: 5 MG (5 MG, SINGLE INTERVAL: EVERYDAY), ORAL
     Route: 048
  2. LASIX [Concomitant]
  3. ALLOPURINOL [Concomitant]
  4. ALPRZOLAM (ALPRAZOLAM) [Concomitant]

REACTIONS (8)
  - BLOOD PRESSURE INADEQUATELY CONTROLLED [None]
  - BLOOD URIC ACID INCREASED [None]
  - COUGH [None]
  - CREATININE RENAL CLEARANCE DECREASED [None]
  - INFLUENZA [None]
  - INSOMNIA [None]
  - OEDEMA [None]
  - PYREXIA [None]
